FAERS Safety Report 7331983-8 (Version None)
Quarter: 2011Q1

REPORT INFORMATION
  Report Type: 
  Country: None (occurrence: None)
  Receive Date: 20110304
  Receipt Date: 20100520
  Transmission Date: 20110831
  Serious: Yes (Other)
  Sender: FDA-Public Use
  Company Number: US-PFIZER INC-2010034367

PATIENT
  Sex: Male
  Weight: 118 kg

DRUGS (2)
  1. DILANTIN [Suspect]
     Indication: CONVULSION
     Dosage: 100 MG, UNK
     Dates: start: 20081101
  2. DILANTIN [Suspect]
     Dosage: 300 MG, AT NIGHT

REACTIONS (1)
  - STEVENS-JOHNSON SYNDROME [None]
